FAERS Safety Report 7372220-8 (Version None)
Quarter: 2011Q1

REPORT INFORMATION
  Report Type: 
  Country: None (occurrence: None)
  Receive Date: 20110324
  Receipt Date: 20110322
  Transmission Date: 20110831
  Serious: Yes (Life-Threatening, Hospitalization)
  Sender: FDA-Public Use
  Company Number: CH-SANOFI-AVENTIS-2011SA004371

PATIENT
  Age: 64 Year
  Sex: Male
  Weight: 86 kg

DRUGS (24)
  1. AVASTIN [Suspect]
     Route: 042
     Dates: start: 20100128, end: 20100128
  2. DEXAMETHASONE SODIUM PHOSPHATE [Concomitant]
     Indication: PROPHYLAXIS
     Route: 041
     Dates: start: 20100128, end: 20101215
  3. LYRICA [Concomitant]
     Route: 048
  4. MOTILIUM [Concomitant]
     Indication: VOMITING
     Route: 048
  5. PRIMPERAN TAB [Concomitant]
     Indication: VOMITING
     Route: 048
  6. ECOFENAC [Suspect]
     Route: 048
     Dates: start: 20101215, end: 20101218
  7. NOVALGIN [Suspect]
  8. EMEND [Concomitant]
     Indication: PROPHYLAXIS
     Route: 048
     Dates: start: 20100128, end: 20101215
  9. CLEMASTINE FUMARATE [Concomitant]
     Indication: PROPHYLAXIS
     Route: 040
     Dates: start: 20100128, end: 20101215
  10. ESOMEPRAZOLE [Concomitant]
     Route: 048
  11. AVASTIN [Suspect]
     Route: 042
     Dates: start: 20101215, end: 20101215
  12. PERFALGAN [Concomitant]
     Indication: PROPHYLAXIS
     Route: 041
     Dates: start: 20100128, end: 20101215
  13. MIDAZOLAM [Concomitant]
     Indication: INSOMNIA
  14. XELODA [Suspect]
     Route: 048
     Dates: start: 20100128, end: 20101218
  15. ALOXI [Concomitant]
     Indication: PROPHYLAXIS
     Route: 040
     Dates: start: 20100128, end: 20101215
  16. ZOLEDRONIC ACID [Concomitant]
     Indication: BONE NEOPLASM
     Route: 041
     Dates: end: 20101122
  17. ZOLPIDEM [Concomitant]
     Indication: INSOMNIA
  18. GLUCOPHAGE [Suspect]
     Route: 048
     Dates: start: 20101218
  19. GLIMEPIRIDE [Concomitant]
     Route: 048
  20. ELOXATIN [Suspect]
     Route: 042
     Dates: start: 20100128, end: 20100128
  21. ELOXATIN [Suspect]
     Route: 042
     Dates: start: 20101215, end: 20101215
  22. FRAXIPARIN [Concomitant]
     Indication: PROPHYLAXIS
     Route: 058
     Dates: start: 20090401
  23. INSULATARD [Concomitant]
     Route: 058
  24. FENOFIBRATE [Concomitant]
     Route: 048

REACTIONS (6)
  - BLOOD AMYLASE INCREASED [None]
  - LACTIC ACIDOSIS [None]
  - HAEMOLYTIC ANAEMIA [None]
  - HEPATIC ENZYME INCREASED [None]
  - LIPASE INCREASED [None]
  - RENAL FAILURE ACUTE [None]
